FAERS Safety Report 7572713-4 (Version None)
Quarter: 2011Q2

REPORT INFORMATION
  Report Type: 
  Country: None (occurrence: None)
  Receive Date: 20110627
  Receipt Date: 20110615
  Transmission Date: 20111010
  Serious: Yes (Death)
  Sender: FDA-Public Use
  Company Number: IT-CELGENEUS-083-50794-11051600

PATIENT
  Sex: Male

DRUGS (4)
  1. VIDAZA [Suspect]
     Dosage: 100 MILLIGRAM
     Route: 050
     Dates: start: 20101220, end: 20101229
  2. VIDAZA [Suspect]
     Dosage: 130 MILLIGRAM
     Route: 050
     Dates: start: 20101025
  3. VIDAZA [Suspect]
     Dosage: 100 MILLIGRAM
     Route: 050
     Dates: start: 20101122
  4. BLOOD TRANSFUSION, AUXILIARY PRODUCTS [Concomitant]
     Route: 051

REACTIONS (1)
  - MYELODYSPLASTIC SYNDROME [None]
